FAERS Safety Report 7324783-6 (Version None)
Quarter: 2011Q1

REPORT INFORMATION
  Report Type: 
  Country: None (occurrence: None)
  Receive Date: 20110218
  Receipt Date: 20110207
  Transmission Date: 20110831
  Serious: Yes (Other)
  Sender: FDA-Public Use
  Company Number: MIN-00702

PATIENT
  Age: 62 Year
  Sex: Female

DRUGS (5)
  1. MINOCYCLINE HCL [Suspect]
     Indication: NOCARDIOSIS
     Dosage: 200MG, DAILY, ORALLY
     Route: 048
  2. CYCLOSPORINE [Concomitant]
  3. PREDNISOLONE [Concomitant]
  4. TRIMETH/SULFA [Suspect]
     Indication: NOCARDIOSIS
     Dosage: TMP 320 MG + SMX 1600 MG, DAILY
  5. METHYLPREDNISOLONE [Concomitant]

REACTIONS (4)
  - NOCARDIOSIS [None]
  - DRUG INEFFECTIVE [None]
  - CONDITION AGGRAVATED [None]
  - ALANINE AMINOTRANSFERASE INCREASED [None]
